FAERS Safety Report 8787680 (Version 1)
Quarter: 2012Q4

REPORT INFORMATION
  Report Type: 
  Country: US (occurrence: US)
  Receive Date: 20120914
  Receipt Date: 20120914
  Transmission Date: 20130627
  Serious: No
  Sender: FDA-Public Use
  Company Number: US-VERTEX PHARMACEUTICAL INC.-AE-2012-009513

PATIENT
  Sex: Female

DRUGS (3)
  1. INCIVEK [Suspect]
     Indication: HEPATITIS C
     Dates: start: 201205
  2. RIBAVIRIN [Concomitant]
     Indication: HEPATITIS C
     Dates: start: 201205
  3. PEGASYS [Concomitant]
     Indication: HEPATITIS C
     Dates: start: 201205

REACTIONS (1)
  - Adverse event [Unknown]
